FAERS Safety Report 7969422-6 (Version None)
Quarter: 2011Q4

REPORT INFORMATION
  Report Type: 
  Country: None (occurrence: None)
  Receive Date: 20111212
  Receipt Date: 20111202
  Transmission Date: 20120403
  Serious: Yes (Other)
  Sender: FDA-Public Use
  Company Number: US-AMGEN-USASP2011062747

PATIENT
  Age: 53 Year
  Sex: Male

DRUGS (3)
  1. SPIRONOLACTONE [Concomitant]
     Dosage: UNK
     Route: 048
  2. ENBREL [Suspect]
     Indication: PSORIASIS
     Dosage: 50 MG, QWK
     Route: 058
     Dates: start: 20090501, end: 20111101
  3. LASIX [Concomitant]
     Dosage: UNK
     Route: 048

REACTIONS (1)
  - POLYCYTHAEMIA VERA [None]
